FAERS Safety Report 18008992 (Version 1)
Quarter: 2020Q3

REPORT INFORMATION
  Report Type: Report from Study
  Country: US (occurrence: US)
  Receive Date: 20200710
  Receipt Date: 20200710
  Transmission Date: 20201103
  Serious: Yes (Death)
  Sender: FDA-Public Use
  Company Number: US-ASTRAZENECA-2020SE86248

PATIENT
  Sex: Female

DRUGS (12)
  1. ZESTRIL [Suspect]
     Active Substance: LISINOPRIL
     Route: 048
  2. LYNPARZA [Suspect]
     Active Substance: OLAPARIB
     Indication: OVARIAN CANCER
     Route: 048
     Dates: start: 20190817
  3. MAGNESIUM [Concomitant]
     Active Substance: MAGNESIUM
  4. POTASSIUM [Concomitant]
     Active Substance: POTASSIUM
  5. LOTRISONE [Concomitant]
     Active Substance: BETAMETHASONE DIPROPIONATE\CLOTRIMAZOLE
  6. PROBIOTIC [Concomitant]
     Active Substance: PROBIOTICS NOS
  7. LIDOCAINE. [Concomitant]
     Active Substance: LIDOCAINE
  8. LOVASTATIN. [Concomitant]
     Active Substance: LOVASTATIN
  9. CLARITIN?D NOS [Concomitant]
     Active Substance: LORATADINE\PSEUDOEPHEDRINE SULFATE
  10. MULTIVITAMINS [Concomitant]
     Active Substance: VITAMINS
  11. EFLORNITHINE [Concomitant]
     Active Substance: EFLORNITHINE
  12. COD LIVER OIL [Concomitant]
     Active Substance: COD LIVER OIL

REACTIONS (2)
  - Drug hypersensitivity [Unknown]
  - Death [Fatal]
